FAERS Safety Report 6239384-0 (Version None)
Quarter: 2009Q2

REPORT INFORMATION
  Report Type: 
  Country: None (occurrence: None)
  Receive Date: 20090622
  Receipt Date: 20090612
  Transmission Date: 20091009
  Serious: Yes (Hospitalization, Other)
  Sender: FDA-Public Use
  Company Number: US-ABBOTT-09P-163-0579618-00

PATIENT

DRUGS (10)
  1. HUMIRA [Suspect]
     Indication: DRUG EXPOSURE DURING PREGNANCY
     Route: 064
     Dates: start: 20080828, end: 20081130
  2. HUMIRA [Suspect]
     Route: 064
     Dates: start: 20081130, end: 20081231
  3. HUMIRA [Suspect]
     Dates: start: 20090101
  4. MULTI-VITAMIN [Concomitant]
     Indication: DRUG EXPOSURE DURING PREGNANCY
     Route: 064
  5. LEVOTHROID [Concomitant]
     Indication: DRUG EXPOSURE DURING PREGNANCY
     Route: 064
  6. VITAMIN TAB [Concomitant]
     Indication: DRUG EXPOSURE DURING PREGNANCY
     Dates: start: 20080408
  7. DHA [Concomitant]
     Indication: DRUG EXPOSURE DURING PREGNANCY
     Dates: start: 20090408
  8. LEVOTHROID [Concomitant]
     Indication: DRUG EXPOSURE DURING PREGNANCY
     Route: 064
     Dates: start: 20081101, end: 20081130
  9. LEVOTHROID [Concomitant]
     Dates: start: 20081201, end: 20090119
  10. LEVOTHROID [Concomitant]
     Route: 064
     Dates: start: 20090120

REACTIONS (2)
  - ENCEPHALITIS HERPES [None]
  - TACHYPNOEA [None]
